FAERS Safety Report 8390392-3 (Version None)
Quarter: 2012Q2

REPORT INFORMATION
  Report Type: 
  Country: None (occurrence: None)
  Receive Date: 20120529
  Receipt Date: 20120516
  Transmission Date: 20120825
  Serious: Yes (Hospitalization, Other)
  Sender: FDA-Public Use
  Company Number: CA-JNJFOC-20120514355

PATIENT
  Sex: Male
  Weight: 71 kg

DRUGS (8)
  1. REMICADE [Suspect]
     Indication: CROHN'S DISEASE
     Route: 042
  2. MORPHINE [Concomitant]
  3. TRIAZOLAM [Concomitant]
  4. CHOLESTYRAMINE [Concomitant]
  5. METOCLOPRAMIDE [Concomitant]
     Route: 048
  6. ADVAIR DISKUS 100/50 [Concomitant]
  7. VISINE EYE DROPS [Concomitant]
     Route: 047
  8. REMICADE [Suspect]
     Route: 042
     Dates: start: 20120323

REACTIONS (1)
  - PULMONARY EMBOLISM [None]
